FAERS Safety Report 5038198-7 (Version None)
Quarter: 2006Q2

REPORT INFORMATION
  Report Type: 
  Country: None (occurrence: None)
  Receive Date: 20060622
  Receipt Date: 20060609
  Transmission Date: 20061013
  Serious: Yes (Other)
  Sender: FDA-Public Use
  Company Number: 2006073079

PATIENT
  Sex: 0

DRUGS (1)
  1. VORICONAZOLE (VORICONAZOLE) [Suspect]

REACTIONS (2)
  - MENTAL STATUS CHANGES [None]
  - NEUROTOXICITY [None]
